FAERS Safety Report 18342095 (Version 1)
Quarter: 2020Q4

REPORT INFORMATION
  Report Type: Spontaneous
  Country: DE (occurrence: DE)
  Receive Date: 20201005
  Receipt Date: 20201005
  Transmission Date: 20210113
  Serious: Yes (Other)
  Sender: FDA-Public Use
  Company Number: DE-SA-2020SA268939

PATIENT

DRUGS (7)
  1. DIMETINDENE [Concomitant]
     Active Substance: DIMETHINDENE
     Dosage: UNK
  2. ACYCLOVIR [ACICLOVIR] [Concomitant]
     Active Substance: ACYCLOVIR
     Dosage: UNK
  3. ALEMTUZUMAB [Suspect]
     Active Substance: ALEMTUZUMAB
     Indication: RELAPSING-REMITTING MULTIPLE SCLEROSIS
     Dosage: 12 MG, QD WAS APPLIED OVER 5 DAYS
     Route: 041
     Dates: start: 201401
  4. RANITIDINE. [Concomitant]
     Active Substance: RANITIDINE
     Dosage: UNK
  5. METHYLPREDNISOLONE. [Concomitant]
     Active Substance: METHYLPREDNISOLONE
     Dosage: 1 G
  6. IBUPROFEN. [Concomitant]
     Active Substance: IBUPROFEN
     Dosage: UNK
  7. CORTICOSTEROID NOS [Concomitant]
     Active Substance: CORTICOSTEROID NOS
     Indication: RELAPSING-REMITTING MULTIPLE SCLEROSIS
     Dosage: UNK

REACTIONS (14)
  - Respiratory failure [Recovered/Resolved]
  - Dyspnoea exertional [Recovered/Resolved]
  - Fatigue [Recovered/Resolved]
  - Pneumonitis [Recovered/Resolved]
  - Bradycardia [Unknown]
  - Diffuse alveolar damage [Recovered/Resolved]
  - Atelectasis [Recovered/Resolved]
  - Respiratory alkalosis [Recovered/Resolved]
  - Toxicity to various agents [Recovered/Resolved]
  - Fatigue [Unknown]
  - Cough [Recovered/Resolved]
  - Hyperplasia [Recovered/Resolved]
  - Restrictive pulmonary disease [Recovered/Resolved]
  - Lung diffusion disorder [Recovered/Resolved]

NARRATIVE: CASE EVENT DATE: 2014
